FAERS Safety Report 16898102 (Version 2)
Quarter: 2019Q4

REPORT INFORMATION
  Report Type: Spontaneous
  Country: ES (occurrence: ES)
  Receive Date: 20191009
  Receipt Date: 20191028
  Transmission Date: 20200122
  Serious: Yes (Disabling, Other)
  Sender: FDA-Public Use
  Company Number: ES-PFIZER INC-511441

PATIENT
  Age: 42 Year
  Sex: Male

DRUGS (9)
  1. AUGMENTIN [Suspect]
     Active Substance: AMOXICILLIN\CLAVULANATE POTASSIUM
     Indication: PROPHYLAXIS
     Dosage: 2 G, SINGLE (1G/200MG, 1 VIAL (VIAL TYPE 1))
     Route: 042
     Dates: start: 20081216, end: 20081216
  2. HALOPERIDOL. [Concomitant]
     Active Substance: HALOPERIDOL
     Dosage: 5 MG, DAILY
     Route: 042
     Dates: start: 20081217
  3. PROPOFOL. [Suspect]
     Active Substance: PROPOFOL
     Indication: ANAESTHESIA
     Dosage: 200 MG, SINGLE
     Route: 042
     Dates: start: 20081216, end: 20081216
  4. ENANTYUM [Suspect]
     Active Substance: DEXKETOPROFEN TROMETAMOL
     Indication: PROCEDURAL PAIN
     Dosage: UNK
     Route: 042
     Dates: start: 20081216, end: 20081216
  5. FENTANEST [Suspect]
     Active Substance: FENTANYL CITRATE
     Indication: ANAESTHESIA
     Dosage: 800 MG, SINGLE
     Route: 042
     Dates: start: 20081216, end: 20081216
  6. RANITIDINE. [Concomitant]
     Active Substance: RANITIDINE
     Dosage: UNK
     Route: 042
     Dates: start: 20081216, end: 20081216
  7. NOLOTIL /06276702/ [Concomitant]
     Active Substance: METAMIZOLE MAGNESIUM
     Dosage: UNK
     Route: 042
     Dates: start: 20081216
  8. OMEPRAZOLE. [Concomitant]
     Active Substance: OMEPRAZOLE
     Dosage: UNK
     Route: 042
     Dates: start: 20081217
  9. PERFALGAN [Concomitant]
     Active Substance: ACETAMINOPHEN
     Dosage: UNK
     Route: 042
     Dates: start: 20081216

REACTIONS (1)
  - Hepatitis [Recovered/Resolved]

NARRATIVE: CASE EVENT DATE: 20081219
